FAERS Safety Report 6258658-0 (Version None)
Quarter: 2009Q3

REPORT INFORMATION
  Report Type: 
  Country: None (occurrence: None)
  Receive Date: 20090702
  Receipt Date: 20090616
  Transmission Date: 20100115
  Serious: Yes (Hospitalization)
  Sender: FDA-Public Use
  Company Number: 2009-198881-NL

PATIENT
  Age: 65 Year
  Sex: Male

DRUGS (13)
  1. DEXAMETHASONE [Suspect]
     Indication: PREMEDICATION
     Dosage: 10 MG INTRAVENOUS (NOS), 15 MINUTES PRIOR TO THE DOCETAXEL INFUSION
     Route: 042
     Dates: start: 20090122, end: 20090122
  2. DASATINIB [Suspect]
     Indication: PROSTATE CANCER
     Dosage: 100 MG DAILY ORAL
     Route: 048
     Dates: start: 20090122
  3. PLACEBO [Suspect]
     Indication: PROSTATE CANCER
     Dosage: ORAL
     Route: 048
     Dates: start: 20090122
  4. TAXOTERE [Suspect]
     Indication: PROSTATE CANCER
     Dosage: 75 MG DAILY INTRAVENOUS (NOS), SQ METER 1/3 WEEK
     Route: 042
     Dates: start: 20090122, end: 20090122
  5. PREDNISONE [Suspect]
     Dosage: 5 MG DAILY
     Dates: start: 20090122
  6. DILAUDID [Concomitant]
  7. VICODIN [Concomitant]
  8. NITRO-DUR [Concomitant]
  9. METOPROLOL TARTRATE [Concomitant]
  10. TYLENOL [Concomitant]
  11. IMODIUM [Concomitant]
  12. ZOFRAN [Concomitant]
  13. FLAGYL [Concomitant]

REACTIONS (9)
  - BACTERIAL INFECTION [None]
  - BLOOD CULTURE POSITIVE [None]
  - CHEST PAIN [None]
  - CLOSTRIDIUM DIFFICILE COLITIS [None]
  - ELECTROCARDIOGRAM T WAVE ABNORMAL [None]
  - INFLUENZA [None]
  - MYOCARDIAL INFARCTION [None]
  - THROMBOSIS [None]
  - WHITE BLOOD CELL COUNT INCREASED [None]
